FAERS Safety Report 25495123 (Version 1)
Quarter: 2025Q2

REPORT INFORMATION
  Report Type: Spontaneous
  Country: FR (occurrence: FR)
  Receive Date: 20250630
  Receipt Date: 20250630
  Transmission Date: 20250717
  Serious: Yes (Other)
  Sender: JOHNSON AND JOHNSON
  Company Number: FR-JNJFOC-20250634739

PATIENT
  Age: 37 Year
  Sex: Female

DRUGS (1)
  1. YONDELIS [Suspect]
     Active Substance: TRABECTEDIN
     Indication: Chondrosarcoma

REACTIONS (6)
  - Myositis [Unknown]
  - Myalgia [Unknown]
  - Swelling [Unknown]
  - Motor dysfunction [Unknown]
  - Pain [Unknown]
  - Blood creatine phosphokinase increased [Unknown]
